FAERS Safety Report 8901826 (Version 3)
Quarter: 2013Q1

REPORT INFORMATION
  Report Type: Spontaneous
  Country: US (occurrence: None)
  Receive Date: 20121106
  Receipt Date: 20121116
  Transmission Date: 20140127
  Serious: Yes (Other)
  Sender: FDA-Public Use
  Company Number: 2012-6343

PATIENT
  Age: 9 Year
  Sex: Male
  Weight: 23.13 kg

DRUGS (2)
  1. INCRELEX [Suspect]
     Indication: INSULIN-LIKE GROWTH FACTOR DECREASED
     Dosage: 5 GM (2.5 MG, 2 IN 1 D)
     Dates: start: 201202
  2. MULTIVITAMIN (MULTIVITAMIN /00831701/) [Concomitant]

REACTIONS (2)
  - Autoimmune thyroiditis [None]
  - Goitre [None]
